FAERS Safety Report 7637602-5 (Version None)
Quarter: 2011Q3

REPORT INFORMATION
  Report Type: 
  Country: None (occurrence: None)
  Receive Date: 20110726
  Receipt Date: 20110718
  Transmission Date: 20111222
  Serious: Yes (Other)
  Sender: FDA-Public Use
  Company Number: PHHY2011BN64454

PATIENT
  Age: 46 Year
  Sex: Female

DRUGS (2)
  1. RIBAVIRIN [Suspect]
     Dosage: 800 MG/DAY
     Route: 065
  2. PEGINTERFERON ALFA-2A [Suspect]
     Dosage: 80 UG, UNK
     Route: 058

REACTIONS (12)
  - AUTOIMMUNE THYROIDITIS [None]
  - EXFOLIATIVE RASH [None]
  - INFLUENZA LIKE ILLNESS [None]
  - SKIN PLAQUE [None]
  - HYPOTHYROIDISM [None]
  - PSORIASIS [None]
  - ALOPECIA [None]
  - PYREXIA [None]
  - MYALGIA [None]
  - INJECTION SITE REACTION [None]
  - PIGMENTATION DISORDER [None]
  - PRURITUS [None]
